FAERS Safety Report 9312737 (Version 2)
Quarter: 2013Q3

REPORT INFORMATION
  Report Type: Spontaneous
  Country: US (occurrence: US)
  Receive Date: 20130528
  Receipt Date: 20130924
  Transmission Date: 20140515
  Serious: Yes (Hospitalization, Other)
  Sender: FDA-Public Use
  Company Number: US-PFIZER INC-2013160233

PATIENT
  Age: 91 Year
  Sex: Female
  Weight: 67.12 kg

DRUGS (6)
  1. LIPITOR [Suspect]
     Indication: BLOOD CHOLESTEROL INCREASED
     Dosage: 10 MG, 1X/DAY
     Route: 048
  2. LIPITOR [Suspect]
     Dosage: UNK
     Route: 048
  3. DIOVAN [Suspect]
     Indication: HYPERTENSION
     Dosage: UNK
  4. DIOVAN [Suspect]
     Dosage: UNK (HALF OF VALSARTAN)
  5. HYDROCHLOROTHIAZIDE [Concomitant]
     Indication: HYPERTENSION
     Dosage: UNK
  6. LISINOPRIL [Concomitant]
     Indication: HYPERTENSION
     Dosage: UNK

REACTIONS (6)
  - Loss of consciousness [Unknown]
  - Ventricular extrasystoles [Unknown]
  - Hypotension [Unknown]
  - Joint swelling [Unknown]
  - Confusional state [Unknown]
  - Heart rate increased [Unknown]
